FAERS Safety Report 11704159 (Version 1)
Quarter: 2015Q4

REPORT INFORMATION
  Report Type: Spontaneous
  Country: TW (occurrence: TW)
  Receive Date: 20151106
  Receipt Date: 20151106
  Transmission Date: 20160304
  Serious: Yes (Other)
  Sender: FDA-Public Use
  Company Number: PHHY2015TW143658

PATIENT
  Age: 7 Year
  Sex: Female

DRUGS (1)
  1. EXJADE [Suspect]
     Active Substance: DEFERASIROX
     Indication: THALASSAEMIA
     Route: 065

REACTIONS (6)
  - Glycosuria [Unknown]
  - Metabolic acidosis [Unknown]
  - Fanconi syndrome acquired [Unknown]
  - Hypokalaemia [Unknown]
  - Hypouricaemia [Unknown]
  - Hypophosphataemia [Unknown]
